FAERS Safety Report 5634602-1 (Version None)
Quarter: 2008Q1

REPORT INFORMATION
  Report Type: 
  Country: None (occurrence: None)
  Receive Date: 20080131
  Receipt Date: 20070925
  Transmission Date: 20080703
  Serious: No
  Sender: FDA-Public Use
  Company Number: 2007-US-000259

PATIENT
  Age: 33 Year
  Sex: Male
  Weight: 97.5 kg

DRUGS (2)
  1. INCRELEX [Suspect]
     Indication: AMYOTROPHIC LATERAL SCLEROSIS
     Dosage: 100 UT, BID, SUBCUTANEOUS
     Route: 058
     Dates: start: 20070831
  2. DYNACIRC [Concomitant]

REACTIONS (1)
  - SWELLING FACE [None]
